FAERS Safety Report 8849311 (Version 1)
Quarter: 2012Q4

REPORT INFORMATION
  Report Type: Spontaneous
  Country: US (occurrence: None)
  Receive Date: 20121017
  Receipt Date: 20121017
  Transmission Date: 20130627
  Serious: Yes (Other)
  Sender: FDA-Public Use
  Company Number: None

PATIENT
  Age: 34 Year
  Sex: Female
  Weight: 104.33 kg

DRUGS (1)
  1. AFRIN NO DRIP EXTRA MOISTURIZING NASAL SPRAY [Suspect]
     Indication: NASAL CONGESTION
     Dosage: 2-3 sprays in each nostril  10-12 hours
     Route: 045
     Dates: start: 20121011, end: 20121013

REACTIONS (2)
  - Anosmia [None]
  - Ageusia [None]
